FAERS Safety Report 7868126-8 (Version None)
Quarter: 2011Q4

REPORT INFORMATION
  Report Type: 
  Country: None (occurrence: None)
  Receive Date: 20111028
  Receipt Date: 20111014
  Transmission Date: 20120403
  Serious: Yes (Other)
  Sender: FDA-Public Use
  Company Number: BE-ELI_LILLY_AND_COMPANY-BE201110004810

PATIENT
  Sex: Female
  Weight: 75 kg

DRUGS (3)
  1. CYMBALTA [Suspect]
     Indication: DEPRESSION
     Dosage: 60 MG, QD
     Route: 048
     Dates: start: 20100825, end: 20110504
  2. CYMBALTA [Suspect]
     Dosage: 15 MG, 2/W
     Route: 048
  3. CYMBALTA [Suspect]
     Dosage: 30 MG, QD
     Route: 048
     Dates: start: 20110505

REACTIONS (3)
  - NAUSEA [None]
  - DRUG WITHDRAWAL SYNDROME [None]
  - VERTIGO [None]
